FAERS Safety Report 25177469 (Version 1)
Quarter: 2025Q2

REPORT INFORMATION
  Report Type: Spontaneous
  Country: US (occurrence: US)
  Receive Date: 20250409
  Receipt Date: 20250409
  Transmission Date: 20250717
  Serious: Yes (Life-Threatening, Other)
  Sender: ENDO
  Company Number: US-ENDO USA, INC.-2025-000947

PATIENT
  Sex: Female

DRUGS (3)
  1. PITOCIN [Suspect]
     Active Substance: OXYTOCIN
     Indication: Labour induction
     Route: 065
  2. PITOCIN [Suspect]
     Active Substance: OXYTOCIN
     Indication: Postpartum haemorrhage
     Route: 065
  3. MAGNESIUM [Concomitant]
     Active Substance: MAGNESIUM
     Indication: Product used for unknown indication
     Route: 065

REACTIONS (4)
  - Uterine atony [Unknown]
  - Postpartum haemorrhage [Unknown]
  - Incorrect product administration duration [Recovered/Resolved]
  - Maternal exposure during pregnancy [Recovered/Resolved]
